APPROVED DRUG PRODUCT: LORAZEPAM
Active Ingredient: LORAZEPAM
Strength: 0.5MG
Dosage Form/Route: TABLET;ORAL
Application: A070727 | Product #001
Applicant: AMERICAN THERAPEUTICS INC
Approved: Mar 7, 1986 | RLD: No | RS: No | Type: DISCN